FAERS Safety Report 21616961 (Version 2)
Quarter: 2022Q4

REPORT INFORMATION
  Report Type: Spontaneous
  Country: CA (occurrence: CA)
  Receive Date: 20221118
  Receipt Date: 20221128
  Transmission Date: 20230113
  Serious: Yes (Other)
  Sender: FDA-Public Use
  Company Number: CA-PFIZER INC-202201307700

PATIENT
  Age: 45 Year
  Sex: Female
  Weight: 78 kg

DRUGS (3)
  1. SULFASALAZINE [Suspect]
     Active Substance: SULFASALAZINE
     Dosage: 500 MG, 3X/DAY (3 TABLETS DAILY)
     Route: 065
     Dates: start: 2013
  2. SIMPONI [Concomitant]
     Active Substance: GOLIMUMAB
     Dosage: UNK
     Dates: start: 2013, end: 2022
  3. PREDNISONE [Concomitant]
     Active Substance: PREDNISONE
     Dosage: UNK
     Dates: start: 2000, end: 2018

REACTIONS (12)
  - Crohn^s disease [Not Recovered/Not Resolved]
  - Rectal ulcer [Unknown]
  - Anal abscess [Unknown]
  - Gastrointestinal disorder [Unknown]
  - Aphthous ulcer [Unknown]
  - Osteoarthritis [Unknown]
  - Spondylitis [Unknown]
  - Arthritis [Unknown]
  - General physical health deterioration [Unknown]
  - Diarrhoea [Unknown]
  - Abdominal pain [Unknown]
  - Anal fissure [Unknown]

NARRATIVE: CASE EVENT DATE: 20220101
